FAERS Safety Report 11589663 (Version 4)
Quarter: 2017Q1

REPORT INFORMATION
  Report Type: Spontaneous
  Country: US (occurrence: US)
  Receive Date: 20151002
  Receipt Date: 20170116
  Transmission Date: 20170428
  Serious: Yes (Other)
  Sender: FDA-Public Use
  Company Number: US-JNJFOC-20150911785

PATIENT
  Age: 14 Year
  Sex: Male

DRUGS (3)
  1. RISPERIDONE. [Suspect]
     Active Substance: RISPERIDONE
     Indication: TOURETTE^S DISORDER
     Route: 048
     Dates: start: 20080721, end: 20081219
  2. RISPERDAL [Suspect]
     Active Substance: RISPERIDONE
     Indication: TIC
     Route: 048
     Dates: start: 20050131, end: 20080819
  3. RISPERDAL [Suspect]
     Active Substance: RISPERIDONE
     Indication: TOURETTE^S DISORDER
     Route: 048
     Dates: start: 20050131, end: 20080819

REACTIONS (3)
  - Gynaecomastia [Unknown]
  - Off label use [Unknown]
  - Product use issue [Unknown]

NARRATIVE: CASE EVENT DATE: 20050131
